FAERS Safety Report 7153005-4 (Version None)
Quarter: 2010Q4

REPORT INFORMATION
  Report Type: 
  Country: None (occurrence: None)
  Receive Date: 20101213
  Receipt Date: 20101130
  Transmission Date: 20110411
  Serious: Yes (Life-Threatening, Other)
  Sender: FDA-Public Use
  Company Number: US-ELI_LILLY_AND_COMPANY-US201009006315

PATIENT
  Sex: Female

DRUGS (1)
  1. FORTEO [Suspect]
     Indication: OSTEOPOROSIS
     Dosage: 20 UG, DAILY (1/D)
     Dates: start: 20100401

REACTIONS (5)
  - CARBON MONOXIDE DIFFUSING CAPACITY DECREASED [None]
  - DRUG DOSE OMISSION [None]
  - LUNG INFECTION [None]
  - MUSCLE TIGHTNESS [None]
  - RESPIRATORY FAILURE [None]
